FAERS Safety Report 7276483-9 (Version None)
Quarter: 2011Q1

REPORT INFORMATION
  Report Type: 
  Country: None (occurrence: None)
  Receive Date: 20110204
  Receipt Date: 20110201
  Transmission Date: 20110831
  Serious: Yes (Other)
  Sender: FDA-Public Use
  Company Number: US-PFIZER INC-2011023302

PATIENT
  Sex: Female
  Weight: 117.91 kg

DRUGS (6)
  1. ROBAXIN [Concomitant]
     Dosage: 750 MG, 3X/DAY
     Route: 048
  2. LYRICA [Suspect]
     Indication: NEURALGIA
     Dosage: 100 MG, 1X/DAY
     Route: 048
     Dates: start: 20070101
  3. PROGESTERONE [Concomitant]
     Dosage: UNK
  4. PERCOCET [Concomitant]
     Dosage: 5.5 MG, 3X/DAY
     Route: 048
  5. PROZAC [Concomitant]
     Dosage: 20 MG, 1X/DAY
  6. PREMARIN [Concomitant]
     Dosage: UNK

REACTIONS (6)
  - LOCAL SWELLING [None]
  - DRUG INEFFECTIVE [None]
  - BURNING SENSATION [None]
  - HYPOAESTHESIA [None]
  - SURGERY [None]
  - INFLAMMATION [None]
